FAERS Safety Report 17718313 (Version 6)
Quarter: 2020Q3

REPORT INFORMATION
  Report Type: Spontaneous
  Country: FR (occurrence: FR)
  Receive Date: 20200428
  Receipt Date: 20200811
  Transmission Date: 20201102
  Serious: Yes (Hospitalization, Other)
  Sender: FDA-Public Use
  Company Number: FR-VALIDUS PHARMACEUTICALS LLC-FR-2020VAL000337

PATIENT

DRUGS (6)
  1. HYDROXYCHLOROQUINE SULFATE. [Suspect]
     Active Substance: HYDROXYCHLOROQUINE SULFATE
     Indication: CORONAVIRUS INFECTION
     Dosage: 600 MG, QD
     Route: 045
     Dates: start: 20200329, end: 20200330
  2. VANCOMYCIN [Suspect]
     Active Substance: VANCOMYCIN
     Indication: STAPHYLOCOCCAL BACTERAEMIA
     Dosage: 2 G, QD
     Route: 042
     Dates: start: 20200406, end: 20200410
  3. CEFOTAXIME SODIUM [Suspect]
     Active Substance: CEFOTAXIME SODIUM
     Indication: PNEUMONIA
     Dosage: 6 G, QD
     Route: 042
     Dates: start: 20200403, end: 20200409
  4. HYDROXYCHLOROQUINE SULFATE. [Suspect]
     Active Substance: HYDROXYCHLOROQUINE SULFATE
     Dosage: 400 MG, QD
     Route: 045
     Dates: start: 20200331, end: 20200408
  5. CEFOTAXIME SODIUM [Suspect]
     Active Substance: CEFOTAXIME SODIUM
     Indication: PNEUMONIA KLEBSIELLA
     Dosage: 6 G, QD
     Route: 042
     Dates: start: 20200328, end: 20200330
  6. SPIRAMYCIN [Suspect]
     Active Substance: SPIRAMYCIN
     Indication: PNEUMONIA
     Dosage: 6 MU, QD
     Route: 045
     Dates: start: 20200328, end: 20200328

REACTIONS (4)
  - Staphylococcal bacteraemia [Recovered/Resolved]
  - Pneumonia bacterial [Recovered/Resolved]
  - Pneumonia bacterial [Unknown]
  - Acute kidney injury [Recovered/Resolved]

NARRATIVE: CASE EVENT DATE: 20200331
